FAERS Safety Report 4617801-7 (Version None)
Quarter: 2005Q1

REPORT INFORMATION
  Report Type: 
  Country: None (occurrence: None)
  Receive Date: 20050322
  Receipt Date: 20050309
  Transmission Date: 20050727
  Serious: Yes (Life-Threatening, Hospitalization)
  Sender: FDA-Public Use
  Company Number: 2005043154

PATIENT
  Age: 38 Year
  Sex: Male

DRUGS (6)
  1. ZITHROMAX [Suspect]
     Indication: TONSILLITIS
     Dosage: (1 D), ORAL
     Route: 048
  2. DALACIN S INJECTION (CLINDAMYCIN) [Suspect]
     Indication: TONSILLITIS
     Dosage: (1 D), INTRAVENOUS
     Route: 042
  3. DIFLUCAN [Suspect]
     Indication: ORAL FUNGAL INFECTION
     Dosage: (1 D), INTRAVENOUS
     Route: 042
     Dates: start: 20050301
  4. CEFOTIAM HYDROCHLORIDE [Suspect]
     Indication: TONSILLITIS
     Dosage: (1 D), INTRAVENOUS
     Route: 042
  5. BETAMETHASONE [Concomitant]
  6. MEROPENEM (MEROPENEM) [Concomitant]

REACTIONS (5)
  - HEPATITIS FULMINANT [None]
  - NEUTROPHIL COUNT INCREASED [None]
  - ORAL FUNGAL INFECTION [None]
  - PYREXIA [None]
  - THERAPY NON-RESPONDER [None]
